FAERS Safety Report 10479143 (Version 4)
Quarter: 2015Q1

REPORT INFORMATION
  Report Type: Spontaneous
  Country: US (occurrence: US)
  Receive Date: 20140926
  Receipt Date: 20150112
  Transmission Date: 20150720
  Serious: Yes (Hospitalization, Other)
  Sender: FDA-Public Use
  Company Number: US-PFIZER INC-2014264316

PATIENT
  Age: 73 Year
  Sex: Male
  Weight: 86 kg

DRUGS (14)
  1. TOPROL XL [Concomitant]
     Active Substance: METOPROLOL SUCCINATE
     Dosage: 25 MG, DAILY
     Route: 048
  2. TYLENOL PM [Concomitant]
     Active Substance: ACETAMINOPHEN\DIPHENHYDRAMINE
     Dosage: ACETAMINOPHEN 500 MG/DIPHENHYDRAMINE 25 MG AS NEEDED NIGHTLY
     Route: 048
  3. PROTONIX [Concomitant]
     Active Substance: PANTOPRAZOLE SODIUM
     Dosage: 40 MG, DAILY
     Route: 048
  4. ZYLOPRIM [Concomitant]
     Active Substance: ALLOPURINOL
     Dosage: 100 MG, NIGHTLY
     Route: 048
  5. LASIX [Concomitant]
     Active Substance: FUROSEMIDE
     Dosage: 20 MG EVERY OTHER DAY, IF WEIGHT INCREASES OVER 200 LBS, DAILY UNTIL WEIGHT IS BACK DOWN
     Route: 048
  6. REVATIO [Suspect]
     Active Substance: SILDENAFIL CITRATE
     Indication: PULMONARY HYPERTENSION
     Dosage: 20 MG, 3X/DAY
     Route: 048
     Dates: start: 201310
  7. MEVACOR [Concomitant]
     Active Substance: LOVASTATIN
     Dosage: 40 MG, NIGHTLY
     Route: 048
  8. ASPIRIN. [Concomitant]
     Active Substance: ASPIRIN
     Indication: CHRONIC OBSTRUCTIVE PULMONARY DISEASE
     Dosage: 81 MG, DAILY
     Route: 048
  9. VITAMIN B12 [Concomitant]
     Active Substance: CYANOCOBALAMIN
     Dosage: 1000 UG, DAILY
     Route: 048
  10. PLAVIX [Concomitant]
     Active Substance: CLOPIDOGREL BISULFATE
     Dosage: 75 MG, NIGHTLY
     Route: 048
  11. OXYGEN. [Concomitant]
     Active Substance: OXYGEN
     Dosage: USE AS DIRECTED- MISCELLANEOUS
  12. COMBIVENT [Concomitant]
     Active Substance: ALBUTEROL SULFATE\IPRATROPIUM BROMIDE
     Indication: CHRONIC OBSTRUCTIVE PULMONARY DISEASE
     Dosage: IPRATROPIUM BROMIDE 18 MCG/ALBUTEROL SULFATE 103 MCG, 2 PUFF EVERY 6 HOUR
     Route: 055
  13. ADVAIR HFA [Concomitant]
     Active Substance: FLUTICASONE PROPIONATE\SALMETEROL XINAFOATE
     Indication: CHRONIC OBSTRUCTIVE PULMONARY DISEASE
     Dosage: FLUTICASONE PROPIONATE 250 MCG/SALMETEROL 50 MCG, 1 PUFF EVERY 12 HOURS
     Route: 055
  14. NORVASC [Concomitant]
     Active Substance: AMLODIPINE BESYLATE
     Dosage: 5 MG, DAILY
     Route: 048

REACTIONS (3)
  - Cardiac failure congestive [Recovered/Resolved]
  - Cardiovascular disorder [Not Recovered/Not Resolved]
  - Head injury [Recovered/Resolved]
